FAERS Safety Report 7809355-9 (Version None)
Quarter: 2011Q4

REPORT INFORMATION
  Report Type: 
  Country: None (occurrence: None)
  Receive Date: 20111012
  Receipt Date: 20111010
  Transmission Date: 20120403
  Serious: Yes (Death, Hospitalization)
  Sender: FDA-Public Use
  Company Number: BR-ABBOTT-11P-020-0851179-00

PATIENT
  Age: 51 Year
  Sex: Female

DRUGS (5)
  1. RALOXIFENE HCL [Concomitant]
     Indication: OSTEOPOROSIS
     Dosage: DAILY
  2. CALCIUM CARBONATE [Concomitant]
     Indication: OSTEOPOROSIS
     Dosage: DAILY
  3. PREDNISONE [Concomitant]
     Indication: PRODUCT USED FOR UNKNOWN INDICATION
     Dosage: DAILY
  4. HUMIRA [Suspect]
     Indication: POLYARTHRITIS
     Dates: start: 20110501, end: 20110601
  5. PREDNISONE [Concomitant]
     Dates: start: 20110601

REACTIONS (11)
  - RENAL FAILURE [None]
  - PYREXIA [None]
  - ASTHENIA [None]
  - RESPIRATORY FAILURE [None]
  - PNEUMONIA [None]
  - COUGH [None]
  - HAEMOLYTIC ANAEMIA [None]
  - SEPSIS [None]
  - RHEUMATOID ARTHRITIS [None]
  - DECREASED APPETITE [None]
  - HEPATIC FAILURE [None]
